FAERS Safety Report 4338876-9 (Version None)
Quarter: 2004Q2

REPORT INFORMATION
  Report Type: 
  Country: None (occurrence: None)
  Receive Date: 20040409
  Receipt Date: 20040330
  Transmission Date: 20050107
  Serious: No
  Sender: FDA-Public Use
  Company Number: A044-002-004938

PATIENT
  Age: 70 Year
  Sex: Male

DRUGS (1)
  1. ARICEPT [Suspect]
     Dosage: ORAL
     Route: 048

REACTIONS (1)
  - HEPATIC FAILURE [None]
